FAERS Safety Report 26083138 (Version 1)
Quarter: 2025Q4

REPORT INFORMATION
  Report Type: Spontaneous
  Country: JP (occurrence: JP)
  Receive Date: 20251124
  Receipt Date: 20251124
  Transmission Date: 20260117
  Serious: Yes (Disabling, Other)
  Sender: PFIZER
  Company Number: JP-PFIZER INC-PV202500136558

PATIENT
  Age: 12 Year
  Sex: Male
  Weight: 50 kg

DRUGS (38)
  1. METHOTREXATE SODIUM [Suspect]
     Active Substance: METHOTREXATE SODIUM
     Indication: Burkitt^s leukaemia
     Dosage: 15 MG X ONCE
     Route: 037
     Dates: start: 20250326, end: 20250326
  2. SOLU-CORTEF [Suspect]
     Active Substance: HYDROCORTISONE SODIUM SUCCINATE
     Indication: Burkitt^s leukaemia
     Dosage: 15 MG
     Route: 037
     Dates: start: 20250326, end: 20250326
  3. VINCRISTINE [Concomitant]
     Active Substance: VINCRISTINE
     Dosage: UNK
     Dates: start: 20250310
  4. CYTARABINE [Concomitant]
     Active Substance: CYTARABINE
     Dosage: SMALL-DOSE
     Dates: start: 20250316, end: 20250320
  5. CYTARABINE [Concomitant]
     Active Substance: CYTARABINE
     Dosage: LARGE-DOSE
     Dates: start: 20250317, end: 20250320
  6. ETOPOSIDE [Concomitant]
     Active Substance: ETOPOSIDE
     Dosage: UNK
     Dates: start: 20250317, end: 20250320
  7. CYCLOPHOSPHAMIDE [Concomitant]
     Active Substance: CYCLOPHOSPHAMIDE
     Dosage: UNK
     Dates: start: 20250310
  8. RITUXIMAB [Concomitant]
     Active Substance: RITUXIMAB
     Dosage: UNK
     Dates: start: 20250314
  9. ACETAMINOPHEN [Concomitant]
     Active Substance: ACETAMINOPHEN
     Dosage: UNK
     Dates: start: 20250306, end: 20250327
  10. ATARAX P [HYDROXYZINE HYDROCHLORIDE] [Concomitant]
     Dosage: UNK
     Dates: start: 20250306
  11. ATARAX P [HYDROXYZINE HYDROCHLORIDE] [Concomitant]
     Dosage: UNK
     Dates: start: 20250310
  12. ATARAX P [HYDROXYZINE HYDROCHLORIDE] [Concomitant]
     Dosage: UNK
     Dates: start: 20250312
  13. ATARAX P [HYDROXYZINE HYDROCHLORIDE] [Concomitant]
     Dosage: UNK
     Dates: start: 20250314
  14. ATROPINE [Concomitant]
     Active Substance: ATROPINE
     Dosage: UNK
     Dates: start: 20250304
  15. ATROPINE [Concomitant]
     Active Substance: ATROPINE
     Dosage: UNK
     Dates: start: 20250326
  16. GRANISETRON [Concomitant]
     Active Substance: GRANISETRON
     Dosage: UNK
     Dates: start: 20250308, end: 20250311
  17. GRANISETRON [Concomitant]
     Active Substance: GRANISETRON
     Dosage: UNK
     Dates: start: 20250316, end: 20250321
  18. GRANISETRON [Concomitant]
     Active Substance: GRANISETRON
     Dosage: UNK
     Dates: start: 20250326
  19. PENTAZOCINE [Concomitant]
     Active Substance: PENTAZOCINE
     Dosage: UNK
     Dates: start: 20250304
  20. PENTAZOCINE [Concomitant]
     Active Substance: PENTAZOCINE
     Dosage: UNK
     Dates: start: 20250326
  21. MIDAZOLAM HYDROCHLORIDE [Concomitant]
     Active Substance: MIDAZOLAM HYDROCHLORIDE
     Dosage: UNK
     Dates: start: 20250304
  22. MIDAZOLAM HYDROCHLORIDE [Concomitant]
     Active Substance: MIDAZOLAM HYDROCHLORIDE
     Dosage: UNK
     Dates: start: 20250326
  23. FUROSEMIDE [Concomitant]
     Active Substance: FUROSEMIDE
     Dosage: UNK
     Dates: start: 20250305, end: 20250308
  24. PRIMPERAN [Concomitant]
     Active Substance: METOCLOPRAMIDE HYDROCHLORIDE
     Dosage: UNK
     Dates: start: 20250304
  25. PRIMPERAN [Concomitant]
     Active Substance: METOCLOPRAMIDE HYDROCHLORIDE
     Dosage: UNK
     Dates: start: 20250305
  26. PRIMPERAN [Concomitant]
     Active Substance: METOCLOPRAMIDE HYDROCHLORIDE
     Dosage: UNK
     Dates: start: 20250308
  27. PRIMPERAN [Concomitant]
     Active Substance: METOCLOPRAMIDE HYDROCHLORIDE
     Dosage: UNK
     Dates: start: 20250309
  28. PRIMPERAN [Concomitant]
     Active Substance: METOCLOPRAMIDE HYDROCHLORIDE
     Dosage: UNK
     Dates: start: 20250311, end: 20250314
  29. MICAFUNGIN [Concomitant]
     Active Substance: MICAFUNGIN SODIUM
     Dosage: UNK
     Dates: start: 20250313, end: 20250326
  30. RASBURICASE [Concomitant]
     Active Substance: RASBURICASE
     Dosage: UNK
     Dates: start: 20250304, end: 20250311
  31. THIOPENTAL [Concomitant]
     Active Substance: THIOPENTAL
     Dosage: UNK
     Dates: start: 20250304
  32. PREDNISOLONE SODIUM SUCCINATE [Concomitant]
     Active Substance: PREDNISOLONE SODIUM SUCCINATE
     Dosage: UNK
     Dates: start: 20250304, end: 20250310
  33. DEXAMETHASONE SODIUM PHOSPHATE [Concomitant]
     Active Substance: DEXAMETHASONE SODIUM PHOSPHATE
     Dosage: UNK
     Dates: start: 20250311, end: 20250321
  34. FOSAPREPITANT [Concomitant]
     Active Substance: FOSAPREPITANT
     Dosage: UNK
     Dates: start: 20250310
  35. FOSAPREPITANT [Concomitant]
     Active Substance: FOSAPREPITANT
     Dosage: UNK
     Dates: start: 20250316
  36. ATOVAQUONE [Concomitant]
     Active Substance: ATOVAQUONE
     Dosage: UNK
     Route: 048
     Dates: start: 20250311
  37. DECADRON [Concomitant]
     Active Substance: DEXAMETHASONE
     Dosage: UNK
     Route: 048
     Dates: start: 20250322
  38. FAMOTIDINE [Concomitant]
     Active Substance: FAMOTIDINE
     Dosage: UNK
     Route: 048
     Dates: start: 20250325

REACTIONS (4)
  - Encephalopathy [Not Recovered/Not Resolved]
  - Central-alveolar hypoventilation [Not Recovered/Not Resolved]
  - Urinary retention [Unknown]
  - Pain in extremity [Unknown]

NARRATIVE: CASE EVENT DATE: 20250327
